FAERS Safety Report 5065097-7 (Version None)
Quarter: 2006Q3

REPORT INFORMATION
  Report Type: 
  Country: None (occurrence: None)
  Receive Date: 20060727
  Receipt Date: 20060727
  Transmission Date: 20061208
  Serious: No
  Sender: FDA-Public Use
  Company Number: None

PATIENT
  Age: 8 Month
  Sex: Male
  Weight: 8.8451 kg

DRUGS (1)
  1. ZANTAC [Suspect]
     Indication: GASTROOESOPHAGEAL REFLUX DISEASE
     Dosage: 1/2 TSP   BID   PO
     Route: 048
     Dates: start: 20060724, end: 20060724

REACTIONS (5)
  - ABDOMINAL PAIN [None]
  - HYPOTONIA [None]
  - RETCHING [None]
  - SOMNOLENCE [None]
  - VOMITING [None]
